FAERS Safety Report 11463434 (Version 1)
Quarter: 2015Q3

REPORT INFORMATION
  Report Type: Spontaneous
  Country: US (occurrence: US)
  Receive Date: 20150831
  Receipt Date: 20150831
  Transmission Date: 20151125
  Serious: No
  Sender: FDA-Public Use
  Company Number: US-ELI_LILLY_AND_COMPANY-US201103002403

PATIENT
  Sex: Female

DRUGS (1)
  1. CYMBALTA [Suspect]
     Active Substance: DULOXETINE HYDROCHLORIDE
     Indication: PANIC ATTACK
     Dosage: 30 MG, 2/D
     Dates: start: 20110215

REACTIONS (10)
  - Pain [Not Recovered/Not Resolved]
  - Memory impairment [Not Recovered/Not Resolved]
  - Vomiting [Unknown]
  - Intentional product misuse [Recovered/Resolved]
  - Weight decreased [Not Recovered/Not Resolved]
  - Viral infection [Unknown]
  - Off label use [Recovered/Resolved]
  - Panic attack [Not Recovered/Not Resolved]
  - Apathy [Not Recovered/Not Resolved]
  - Diarrhoea [Unknown]
